FAERS Safety Report 9604820 (Version 4)
Quarter: 2013Q4

REPORT INFORMATION
  Report Type: Spontaneous
  Country: IT (occurrence: IT)
  Receive Date: 20131008
  Receipt Date: 20131101
  Transmission Date: 20140711
  Serious: Yes (Hospitalization, Other)
  Sender: FDA-Public Use
  Company Number: IT-PFIZER INC-2013230046

PATIENT
  Age: 83 Year
  Sex: Male

DRUGS (6)
  1. CARDURA [Suspect]
     Indication: CARDIOVASCULAR DISORDER
     Dosage: 2 MG, TOTAL
     Route: 048
     Dates: start: 20130629, end: 20130630
  2. AMIODAR [Suspect]
     Indication: CARDIOVASCULAR DISORDER
     Dosage: 200 MG, DAILY
     Route: 048
     Dates: start: 20120630
  3. COTAREG [Suspect]
     Indication: CARDIOVASCULAR DISORDER
     Dosage: 1 DF, DAILY
     Route: 048
     Dates: start: 20120630
  4. LERCADIP [Suspect]
     Indication: CARDIOVASCULAR DISORDER
     Dosage: 20 MG, DAILY
     Route: 048
     Dates: start: 20120630
  5. PRADAXA [Concomitant]
     Dosage: 220 MG, UNK
     Route: 048
  6. CARDIRENE [Concomitant]
     Dosage: UNK

REACTIONS (3)
  - Syncope [Recovering/Resolving]
  - Electrocardiogram QT prolonged [Unknown]
  - Sinus bradycardia [Unknown]
